FAERS Safety Report 8830336 (Version 3)
Quarter: 2013Q3

REPORT INFORMATION
  Report Type: Spontaneous
  Country: US (occurrence: US)
  Receive Date: 20121009
  Receipt Date: 20130807
  Transmission Date: 20140515
  Serious: No
  Sender: FDA-Public Use
  Company Number: US-UCBSA-068262

PATIENT
  Age: 47 Year
  Sex: Male

DRUGS (2)
  1. CIMZIA [Suspect]
     Indication: PSORIATIC ARTHROPATHY
     Dates: start: 20120904, end: 2012
  2. ENBREL [Concomitant]
     Dates: end: 2012

REACTIONS (3)
  - Ear lobe infection [Recovered/Resolved]
  - Injection site reaction [Recovering/Resolving]
  - Constipation [Recovered/Resolved]
